FAERS Safety Report 6016871-1 (Version None)
Quarter: 2008Q4

REPORT INFORMATION
  Report Type: 
  Country: None (occurrence: None)
  Receive Date: 20081219
  Receipt Date: 20070416
  Transmission Date: 20090506
  Serious: Yes (Other)
  Sender: FDA-Public Use
  Company Number: TEST00207001172

PATIENT
  Age: 2 Year
  Sex: Female
  Weight: 13.2 kg

DRUGS (2)
  1. ANDROGEL [Suspect]
     Indication: ACCIDENTAL EXPOSURE
     Dosage: UNKNOWN DAILY TRANSCUTANEOUS
  2. ANDROGEL [Suspect]
     Indication: HYPOPITUITARISM
     Dosage: UNKNOWN DAILY TRANSCUTANEOUS

REACTIONS (4)
  - ACCIDENTAL EXPOSURE [None]
  - BLOOD TESTOSTERONE INCREASED [None]
  - ENLARGED CLITORIS [None]
  - VIRILISM [None]
